FAERS Safety Report 6692994-9 (Version None)
Quarter: 2010Q2

REPORT INFORMATION
  Report Type: 
  Country: None (occurrence: None)
  Receive Date: 20100422
  Receipt Date: 20100407
  Transmission Date: 20101027
  Serious: Yes (Death)
  Sender: FDA-Public Use
  Company Number: DE-GENENTECH-298174

PATIENT
  Sex: Male
  Weight: 76 kg

DRUGS (4)
  1. RITUXIMAB [Suspect]
     Indication: CHRONIC LYMPHOCYTIC LEUKAEMIA
     Dosage: UNK
     Route: 042
  2. RITUXIMAB [Suspect]
     Dosage: 250 MG, UNK
     Route: 042
     Dates: start: 20090514, end: 20090514
  3. BENDAMUSTINE [Suspect]
     Indication: CHRONIC LYMPHOCYTIC LEUKAEMIA
     Dosage: 170 MG, UNK
     Route: 042
     Dates: start: 20090514, end: 20090515
  4. GRANISETRON [Concomitant]
     Indication: DRUG USE FOR UNKNOWN INDICATION
     Dosage: 1 MG, UNK
     Route: 042
     Dates: start: 20090514, end: 20090515

REACTIONS (1)
  - SEPSIS [None]
